FAERS Safety Report 5954463-0 (Version None)
Quarter: 2008Q4

REPORT INFORMATION
  Report Type: 
  Country: None (occurrence: None)
  Receive Date: 20081113
  Receipt Date: 20081113
  Transmission Date: 20090506
  Serious: Yes (Hospitalization)
  Sender: FDA-Public Use
  Company Number: None

PATIENT
  Sex: Female
  Weight: 58.5 kg

DRUGS (4)
  1. CISPLATIN [Suspect]
     Dosage: 164 MG
  2. ETOPOSIDE [Suspect]
     Dosage: 264 MG
  3. GEMCITABINE HCL [Suspect]
     Dosage: 1650 MG
  4. METHYLPREDNISOLONE 16MG TAB [Suspect]
     Dosage: 1000 MG

REACTIONS (13)
  - ACUTE MYOCARDIAL INFARCTION [None]
  - ANEURYSM [None]
  - BLOOD CREATININE INCREASED [None]
  - DEPRESSED LEVEL OF CONSCIOUSNESS [None]
  - DYSPNOEA [None]
  - FALL [None]
  - HYPOTONIA [None]
  - PUPILLARY REFLEX IMPAIRED [None]
  - PUPILS UNEQUAL [None]
  - RESPIRATORY DISTRESS [None]
  - SOMNOLENCE [None]
  - SUBARACHNOID HAEMORRHAGE [None]
  - VOMITING [None]
